FAERS Safety Report 6935229-1 (Version None)
Quarter: 2010Q3

REPORT INFORMATION
  Report Type: 
  Country: None (occurrence: None)
  Receive Date: 20100822
  Receipt Date: 20090909
  Transmission Date: 20110219
  Serious: No
  Sender: FDA-Public Use
  Company Number: US-ALLERGAN-0912630US

PATIENT
  Sex: Male

DRUGS (1)
  1. FLUOROPLEX [Suspect]
     Indication: HYPERKERATOSIS
     Dosage: UNK
     Route: 061
     Dates: start: 20090801, end: 20090901

REACTIONS (1)
  - PRURITUS [None]
